FAERS Safety Report 25976427 (Version 4)
Quarter: 2025Q4

REPORT INFORMATION
  Report Type: Spontaneous
  Country: BR (occurrence: BR)
  Receive Date: 20251029
  Receipt Date: 20251111
  Transmission Date: 20260117
  Serious: Yes (Death, Hospitalization, Other)
  Sender: NOVARTIS
  Company Number: BR-002147023-NVSC2025BR162985

PATIENT
  Age: 73 Year
  Sex: Male
  Weight: 90 kg

DRUGS (2)
  1. TEGRETOL XR [Suspect]
     Active Substance: CARBAMAZEPINE
     Indication: Trigeminal nerve disorder
     Dosage: 200 MG (60 TABLETS)
     Route: 065
  2. ALBUTEROL [Concomitant]
     Active Substance: ALBUTEROL
     Indication: Product used for unknown indication
     Dosage: UNK (SPRAY)
     Route: 065

REACTIONS (35)
  - Death [Fatal]
  - Hepatic failure [Fatal]
  - Sepsis [Fatal]
  - Shock [Fatal]
  - Hepatorenal syndrome [Fatal]
  - Confusional state [Recovered/Resolved]
  - Abdominal distension [Not Recovered/Not Resolved]
  - Hepatomegaly [Not Recovered/Not Resolved]
  - Confusional state [Not Recovered/Not Resolved]
  - Diabetes mellitus [Unknown]
  - Renal failure [Unknown]
  - Unresponsive to stimuli [Unknown]
  - Gait disturbance [Not Recovered/Not Resolved]
  - Muscular weakness [Not Recovered/Not Resolved]
  - Speech disorder [Not Recovered/Not Resolved]
  - Asthenia [Not Recovered/Not Resolved]
  - Malaise [Unknown]
  - Somnolence [Recovered/Resolved]
  - Dysarthria [Unknown]
  - Pain in extremity [Unknown]
  - Pyrexia [Unknown]
  - Back pain [Unknown]
  - Infection [Unknown]
  - Dehydration [Unknown]
  - Cardiac disorder [Unknown]
  - Hypotension [Unknown]
  - Oliguria [Unknown]
  - Heart rate decreased [Unknown]
  - Chromaturia [Unknown]
  - Oedema peripheral [Unknown]
  - Agitation [Unknown]
  - Sluggishness [Unknown]
  - Blood creatinine increased [Not Recovered/Not Resolved]
  - Acidosis [Not Recovered/Not Resolved]
  - Disorientation [Unknown]

NARRATIVE: CASE EVENT DATE: 20251001
